FAERS Safety Report 22306558 (Version 4)
Quarter: 2024Q2

REPORT INFORMATION
  Report Type: Report from Study
  Country: JP (occurrence: JP)
  Receive Date: 20230511
  Receipt Date: 20240517
  Transmission Date: 20240715
  Serious: Yes (Death)
  Sender: FDA-Public Use
  Company Number: JP-ALNYLAM PHARMACEUTICALS, INC.-ALN-2023-002127

PATIENT

DRUGS (7)
  1. AMVUTTRA [Suspect]
     Active Substance: VUTRISIRAN
     Indication: Hereditary neuropathic amyloidosis
     Dosage: 25 MILLIGRAM
     Route: 058
     Dates: start: 20230313, end: 20230313
  2. JUVELA [Concomitant]
     Active Substance: .ALPHA.-TOCOPHEROL\RETINOL
     Indication: Hereditary neuropathic amyloidosis
     Dosage: 100 MG/DAY
     Route: 048
     Dates: end: 20230508
  3. TAMSULOSIN HYDROCHLORIDE [Concomitant]
     Active Substance: TAMSULOSIN HYDROCHLORIDE
     Indication: Benign prostatic hyperplasia
     Dosage: 0.2 MG/DAY
     Route: 048
     Dates: end: 20230508
  4. TRAMCET [Concomitant]
     Active Substance: ACETAMINOPHEN\TRAMADOL
     Indication: Hereditary neuropathic amyloidosis
     Dosage: 1 TABLET/DAY
     Route: 048
     Dates: end: 20230507
  5. TANATRIL [Concomitant]
     Indication: Hypertension
     Dosage: 10 MILLIGRAM/DAY
     Route: 048
     Dates: end: 20230508
  6. DIART [Concomitant]
     Indication: Cardiac failure
     Dosage: 30 MILLIGRAM/DAY
     Route: 048
     Dates: end: 20230508
  7. VITAMINS [Concomitant]
     Active Substance: VITAMINS
     Indication: Vitamin supplementation
     Dosage: 1 GRAM/DAY
     Route: 048
     Dates: start: 20230313, end: 20230508

REACTIONS (1)
  - Cardio-respiratory arrest [Fatal]

NARRATIVE: CASE EVENT DATE: 20230508
